FAERS Safety Report 4446573-4 (Version None)
Quarter: 2004Q3

REPORT INFORMATION
  Report Type: 
  Country: None (occurrence: None)
  Receive Date: 20040908
  Receipt Date: 20040823
  Transmission Date: 20050211
  Serious: Yes (Hospitalization)
  Sender: FDA-Public Use
  Company Number: 171774

PATIENT
  Age: 60 Year
  Sex: Female
  Weight: 74.8435 kg

DRUGS (5)
  1. AVONEX [Suspect]
     Indication: MULTIPLE SCLEROSIS
     Dosage: 30 MCG QW IM
     Route: 030
     Dates: start: 20020901
  2. VIOXX [Concomitant]
  3. GASTROINTESTINAL DRUG [Concomitant]
  4. VITAMINS NOS [Concomitant]
  5. IBUPROFEN [Concomitant]

REACTIONS (4)
  - BLOOD CHOLESTEROL INCREASED [None]
  - HYPERTENSION [None]
  - ISCHAEMIA [None]
  - PALPITATIONS [None]
